FAERS Safety Report 9927485 (Version 1)
Quarter: 2014Q1

REPORT INFORMATION
  Report Type: Report from Study
  Country: AR (occurrence: AR)
  Receive Date: 20140227
  Receipt Date: 20140227
  Transmission Date: 20141002
  Serious: Yes (Other)
  Sender: FDA-Public Use
  Company Number: PHHY2014AR023175

PATIENT
  Sex: Female

DRUGS (1)
  1. EXFORGE [Suspect]
     Indication: HYPERTENSION
     Dosage: 1 DF (160/5 MG), DAILY
     Route: 048

REACTIONS (4)
  - Poisoning [Recovered/Resolved]
  - Varicose vein [Unknown]
  - Decreased activity [Unknown]
  - Incorrect dose administered [Recovered/Resolved]
